FAERS Safety Report 7953264-1 (Version None)
Quarter: 2011Q4

REPORT INFORMATION
  Report Type: 
  Country: None (occurrence: None)
  Receive Date: 20111201
  Receipt Date: 20110927
  Transmission Date: 20120403
  Serious: Yes (Hospitalization)
  Sender: FDA-Public Use
  Company Number: FR-ROCHE-1011345

PATIENT
  Sex: Male
  Weight: 75 kg

DRUGS (5)
  1. MIOREL [Suspect]
     Indication: BACK PAIN
     Route: 048
     Dates: start: 20110816, end: 20110819
  2. ACETAMINOPHEN W/ PROPOXYPHENE HCL [Suspect]
     Indication: BACK PAIN
     Route: 048
     Dates: start: 20110816, end: 20110819
  3. OMEPRAZOLE [Suspect]
     Indication: BACK PAIN
     Route: 048
     Dates: start: 20110816, end: 20110819
  4. ASPEGIC 325 [Concomitant]
     Dates: start: 20110101
  5. NAPROSYN [Suspect]
     Indication: BACK PAIN
     Route: 048
     Dates: start: 20110816, end: 20110819

REACTIONS (4)
  - INCOHERENT [None]
  - BLOOD PRESSURE INCREASED [None]
  - SPEECH DISORDER [None]
  - DISORIENTATION [None]
